FAERS Safety Report 23621807 (Version 1)
Quarter: 2024Q1

REPORT INFORMATION
  Report Type: Spontaneous
  Country: US (occurrence: None)
  Receive Date: 20240311
  Receipt Date: 20240311
  Transmission Date: 20240410
  Serious: Yes (Disabling)
  Sender: FDA-Public Use
  Company Number: None

PATIENT
  Age: 58 Year
  Sex: Female
  Weight: 72 kg

DRUGS (6)
  1. ARTICAINE [Suspect]
     Active Substance: ARTICAINE
     Dosage: OTHER ROUTE : INJECTION IN THE MOUTH;?
     Route: 050
     Dates: start: 20211104, end: 20211104
  2. MENAQUINONE 6 [Concomitant]
     Active Substance: MENAQUINONE 6
  3. VITAMIN D3 [Concomitant]
     Active Substance: CHOLECALCIFEROL
  4. MAGNESIUM GLYCINATE [Concomitant]
     Active Substance: MAGNESIUM GLYCINATE
  5. ADVIL [Concomitant]
     Active Substance: IBUPROFEN
  6. TYLENOL [Concomitant]
     Active Substance: ACETAMINOPHEN

REACTIONS (7)
  - Paraesthesia [None]
  - Pruritus [None]
  - Paraesthesia [None]
  - Hypoaesthesia [None]
  - Burning sensation [None]
  - Shock symptom [None]
  - Post procedural complication [None]

NARRATIVE: CASE EVENT DATE: 20211104
